FAERS Safety Report 24891603 (Version 1)
Quarter: 2025Q1

REPORT INFORMATION
  Report Type: Spontaneous
  Country: US (occurrence: US)
  Receive Date: 20250127
  Receipt Date: 20250127
  Transmission Date: 20250409
  Serious: Yes (Other)
  Sender: INTERCHEM
  Company Number: US-HQ SPECIALTY-US-2025INT000007

PATIENT
  Age: 4 Year
  Sex: Male
  Weight: 26.4 kg

DRUGS (1)
  1. DEXMEDETOMIDINE HYDROCHLORIDE [Suspect]
     Active Substance: DEXMEDETOMIDINE HYDROCHLORIDE
     Indication: Sedation
     Dosage: 2 MICROGRAM/KILOGRAM, QD
     Route: 045

REACTIONS (2)
  - Respiratory failure [Recovering/Resolving]
  - Off label use [Unknown]
